FAERS Safety Report 11617601 (Version 3)
Quarter: 2015Q4

REPORT INFORMATION
  Report Type: Report from Study
  Country: DE (occurrence: DE)
  Receive Date: 20151009
  Receipt Date: 20151119
  Transmission Date: 20160304
  Serious: Yes (Hospitalization, Other)
  Sender: FDA-Public Use
  Company Number: DE-ABBVIE-15P-062-1476309-00

PATIENT
  Age: 75 Year
  Sex: Male

DRUGS (3)
  1. MADOPAR [Concomitant]
     Active Substance: BENSERAZIDE HYDROCHLORIDE\LEVODOPA
     Indication: PRODUCT USED FOR UNKNOWN INDICATION
     Route: 065
  2. DUODOPA [Suspect]
     Active Substance: CARBIDOPA\LEVODOPA
     Indication: PARKINSON^S DISEASE
     Dosage: MD 7.5 ML, CRD 4.6 ML/HR, ED 1.5 ML
     Route: 050
     Dates: start: 20141119, end: 2015
  3. DUODOPA [Suspect]
     Active Substance: CARBIDOPA\LEVODOPA
     Dosage: MD 7.5 ML, CRD 3.7 ML/HR, ED 1.5 ML
     Route: 050
     Dates: start: 2015

REACTIONS (4)
  - Cerebrovascular accident [Unknown]
  - Cerebellar infarction [Unknown]
  - Ataxia [Unknown]
  - Hyperkinesia [Not Recovered/Not Resolved]

NARRATIVE: CASE EVENT DATE: 201510
